FAERS Safety Report 5062532-5 (Version None)
Quarter: 2006Q3

REPORT INFORMATION
  Report Type: 
  Country: None (occurrence: None)
  Receive Date: 20060703
  Receipt Date: 20051117
  Transmission Date: 20061208
  Serious: No
  Sender: FDA-Public Use
  Company Number: 2005S1011515

PATIENT
  Age: 47 Year
  Sex: Male

DRUGS (11)
  1. CLOZAPINE [Suspect]
     Indication: SCHIZOPHRENIA
     Dosage: 650 MG;QD;ORAL
     Route: 048
     Dates: start: 20010501
  2. BENZTROPINE MESYLATE [Concomitant]
  3. RISPERIDONE [Concomitant]
  4. DESMOPRESSIN [Concomitant]
  5. ASCORBIC ACID/TOCOPHERYL ACETATE/BETACAROTENE/ZINC [Concomitant]
  6. VALPROATE SODIUM [Concomitant]
  7. POLYCARBOPHIL CALCIUM [Concomitant]
  8. DOCUSATE SODIUM [Concomitant]
  9. AMLODIPINE BESYLATE [Concomitant]
  10. CITALOPRAM HYDROBROMIDE [Concomitant]
  11. ASCORBIC ACID/TOCOPHERYL ACETATE/ZINC [Concomitant]

REACTIONS (1)
  - GRANULOCYTOPENIA [None]
